FAERS Safety Report 15495491 (Version 4)
Quarter: 2019Q2

REPORT INFORMATION
  Report Type: Spontaneous
  Country: US (occurrence: US)
  Receive Date: 20181013
  Receipt Date: 20190429
  Transmission Date: 20190711
  Serious: No
  Sender: FDA-Public Use
  Company Number: US-ASTRAZENECA-2018SF27350

PATIENT
  Sex: Male
  Weight: 98.4 kg

DRUGS (2)
  1. BYDUREON BCISE [Suspect]
     Active Substance: EXENATIDE
     Indication: TYPE 2 DIABETES MELLITUS
     Route: 058
     Dates: start: 2018
  2. LEVEMIR [Concomitant]
     Active Substance: INSULIN DETEMIR

REACTIONS (7)
  - Device issue [Unknown]
  - Injection site nodule [Recovered/Resolved]
  - Injection site bruising [Recovered/Resolved]
  - Incorrect dose administered by device [Unknown]
  - Intentional product misuse [Unknown]
  - Medication error [Unknown]
  - Blood glucose abnormal [Unknown]
